FAERS Safety Report 5963324-2 (Version None)
Quarter: 2008Q4

REPORT INFORMATION
  Report Type: 
  Country: None (occurrence: None)
  Receive Date: 20081121
  Receipt Date: 20081121
  Transmission Date: 20090506
  Serious: Yes (Other)
  Sender: FDA-Public Use
  Company Number: None

PATIENT
  Age: 62 Year
  Sex: Male
  Weight: 91.6266 kg

DRUGS (1)
  1. LYRICA [Suspect]
     Indication: NEURALGIA
     Dosage: 200MG 3/DAY PO
     Route: 048
     Dates: start: 20070301, end: 20081020

REACTIONS (4)
  - ARTHRALGIA [None]
  - GAIT DISTURBANCE [None]
  - MOVEMENT DISORDER [None]
  - TENDON PAIN [None]
